FAERS Safety Report 21439420 (Version 1)
Quarter: 2022Q4

REPORT INFORMATION
  Report Type: Spontaneous
  Country: US (occurrence: US)
  Receive Date: 20221011
  Receipt Date: 20221011
  Transmission Date: 20230113
  Serious: No
  Sender: FDA-Public Use
  Company Number: US-LUPIN PHARMACEUTICALS INC.-2022-11761

PATIENT
  Age: 68 Year
  Sex: Male

DRUGS (13)
  1. RIFABUTIN [Interacting]
     Active Substance: RIFABUTIN
     Indication: Tuberculosis
     Dosage: 300 MG, QD
     Route: 065
  2. RIFABUTIN [Interacting]
     Active Substance: RIFABUTIN
     Dosage: 600 MG, QD (RIFABUTIN WAS INCREASED TO 600MG DAILY)
     Route: 065
  3. DOLUTEGRAVIR [Interacting]
     Active Substance: DOLUTEGRAVIR
     Indication: HIV infection
     Dosage: 50 MG, BID
     Route: 065
  4. DOLUTEGRAVIR [Interacting]
     Active Substance: DOLUTEGRAVIR
     Dosage: 100 MG, BID (DOSE WAS INCREASED TO 100MG TWICE A DAY)
     Route: 065
  5. DARUNAVIR\RITONAVIR [Concomitant]
     Active Substance: DARUNAVIR\RITONAVIR
     Indication: HIV infection
     Dosage: UNK (AS A PART OF DARUNAVIR/RITONAVIR, EMTRICITABINE AND TENOFOVIR ALAFENAMIDE)
     Route: 065
  6. EMTRICITABINE [Concomitant]
     Active Substance: EMTRICITABINE
     Indication: HIV infection
     Dosage: UNK (AS A PART OF DARUNAVIR/RITONAVIR, EMTRICITABINE AND TENOFOVIR ALAFENAMIDE)
     Route: 065
  7. EMTRICITABINE [Concomitant]
     Active Substance: EMTRICITABINE
     Dosage: AS A PART OF DOLUTEGRAVIR, EMTRICITABINE AND TENOFOVIR DISOPROXIL FUMARATE.
     Route: 065
  8. TENOFOVIR ALAFENAMIDE [Concomitant]
     Active Substance: TENOFOVIR ALAFENAMIDE
     Indication: HIV infection
     Dosage: UNK (AS A PART OF DARUNAVIR/RITONAVIR, EMTRICITABINE AND TENOFOVIR ALAFENAMIDE)
     Route: 065
  9. TENOFOVIR DISOPROXIL FUMARATE [Concomitant]
     Active Substance: TENOFOVIR DISOPROXIL FUMARATE
     Indication: HIV infection
     Dosage: UNK
     Route: 065
  10. RIFAMPIN [Concomitant]
     Active Substance: RIFAMPIN
     Indication: Tuberculosis
     Dosage: UNK
     Route: 065
  11. ISONIAZID [Concomitant]
     Active Substance: ISONIAZID
     Indication: Tuberculosis
     Dosage: UNK
     Route: 065
  12. PYRAZINAMIDE [Concomitant]
     Active Substance: PYRAZINAMIDE
     Indication: Tuberculosis
     Dosage: UNK
     Route: 065
  13. ETHAMBUTOL [Concomitant]
     Active Substance: ETHAMBUTOL HYDROCHLORIDE
     Indication: Tuberculosis
     Dosage: UNK
     Route: 065

REACTIONS (2)
  - Drug interaction [Unknown]
  - Drug level decreased [Recovering/Resolving]
